FAERS Safety Report 25366032 (Version 1)
Quarter: 2025Q2

REPORT INFORMATION
  Report Type: Report from Study
  Country: GB (occurrence: GB)
  Receive Date: 20250528
  Receipt Date: 20250528
  Transmission Date: 20250717
  Serious: Yes (Other)
  Sender: SANDOZ
  Company Number: GB-NOVPHSZ-PHHY2016GB152679

PATIENT
  Sex: Female

DRUGS (2)
  1. OMNITROPE [Suspect]
     Active Substance: SOMATROPIN
     Indication: Hypopituitarism
     Dosage: 0.10 MG, QOD
     Route: 058
  2. OMNITROPE [Suspect]
     Active Substance: SOMATROPIN
     Dosage: 0.35 MG, QD
     Route: 065

REACTIONS (18)
  - Coma [Unknown]
  - Pain in extremity [Unknown]
  - Diarrhoea [Unknown]
  - Alopecia [Unknown]
  - Brain fog [Unknown]
  - Memory impairment [Unknown]
  - Nerve compression [Unknown]
  - Feeling drunk [Unknown]
  - Infection [Unknown]
  - Myalgia [Unknown]
  - Gait disturbance [Unknown]
  - Stress [Unknown]
  - Illness [Unknown]
  - Pain [Unknown]
  - Headache [Unknown]
  - Drug dose omission by device [Unknown]
  - Device difficult to use [Unknown]
  - Expired device used [Unknown]
